FAERS Safety Report 10017321 (Version 1)
Quarter: 2014Q1

REPORT INFORMATION
  Report Type: Spontaneous
  Country: US (occurrence: None)
  Receive Date: 20140313
  Receipt Date: 20140313
  Transmission Date: 20141002
  Serious: Yes (Disabling)
  Sender: FDA-Public Use
  Company Number: None

PATIENT
  Age: 65 Year
  Sex: Male
  Weight: 133.81 kg

DRUGS (1)
  1. ANDROGEL 1.62% ABBOTT LABORATORIES [Suspect]
     Indication: BLOOD TESTOSTERONE DECREASED
     Dosage: 2 PUMPS ONCE DAILY APPLIED TO A SURFACE, USUALLY THE SKIN
     Dates: start: 20130905, end: 20131006

REACTIONS (5)
  - Laziness [None]
  - Weight increased [None]
  - Dyspnoea [None]
  - Atrial fibrillation [None]
  - Feeling abnormal [None]
